FAERS Safety Report 9148679 (Version 1)
Quarter: 2013Q1

REPORT INFORMATION
  Report Type: Spontaneous
  Country: JP (occurrence: None)
  Receive Date: 20130305
  Receipt Date: 20130305
  Transmission Date: 20140127
  Serious: Yes (Death, Other)
  Sender: FDA-Public Use
  Company Number: ABR_00851_2013

PATIENT
  Age: 80 Year
  Sex: Male
  Weight: 51 kg

DRUGS (1)
  1. GLIADEL [Suspect]
     Indication: MALIGNANT GLIOMA
     Dosage: [8 WAFERS] INTRACEREBRAL)
     Dates: start: 20130110

REACTIONS (4)
  - Hypertension [None]
  - Fall [None]
  - Pulmonary embolism [None]
  - Epilepsy [None]
